FAERS Safety Report 21152794 (Version 1)
Quarter: 2022Q3

REPORT INFORMATION
  Report Type: Spontaneous
  Country: US (occurrence: US)
  Receive Date: 20220730
  Receipt Date: 20220730
  Transmission Date: 20221027
  Serious: No
  Sender: FDA-Public Use
  Company Number: US-SA-SAC20220726001665

PATIENT
  Age: 49 Year
  Sex: Female
  Weight: 111 kg

DRUGS (5)
  1. DUPIXENT [Suspect]
     Active Substance: DUPILUMAB
     Indication: Dermatitis atopic
     Dosage: 600 MG, 1X
     Route: 058
     Dates: start: 20220712, end: 20220712
  2. DUPIXENT [Suspect]
     Active Substance: DUPILUMAB
     Dosage: 300 MG, QOW
     Route: 058
  3. PREDNISONE [Concomitant]
     Active Substance: PREDNISONE
  4. AMMONIUM LACTATE [Concomitant]
     Active Substance: AMMONIUM LACTATE
  5. CLARAVIS [Concomitant]
     Active Substance: ISOTRETINOIN

REACTIONS (4)
  - Sleep disorder [Unknown]
  - Dry skin [Unknown]
  - Pruritus [Unknown]
  - Skin exfoliation [Unknown]

NARRATIVE: CASE EVENT DATE: 20220701
